FAERS Safety Report 21775573 (Version 1)
Quarter: 2022Q4

REPORT INFORMATION
  Report Type: Spontaneous
  Country: US (occurrence: US)
  Receive Date: 20221226
  Receipt Date: 20221226
  Transmission Date: 20230113
  Serious: No
  Sender: FDA-Public Use
  Company Number: US-MIGRATION_PFIZER-2022BHV002169

PATIENT
  Sex: Female

DRUGS (2)
  1. NURTEC ODT [Suspect]
     Active Substance: RIMEGEPANT SULFATE
     Indication: Migraine
     Route: 048
  2. ELETRIPTAN [Concomitant]
     Active Substance: ELETRIPTAN
     Dosage: TOOK THIS MORNING
     Route: 065

REACTIONS (2)
  - Migraine [Unknown]
  - Influenza [Unknown]
